FAERS Safety Report 8426537-6 (Version None)
Quarter: 2012Q2

REPORT INFORMATION
  Report Type: 
  Country: None (occurrence: None)
  Receive Date: 20120611
  Receipt Date: 20120601
  Transmission Date: 20120825
  Serious: Yes (Other)
  Sender: FDA-Public Use
  Company Number: NL-PFIZER INC-2012133530

PATIENT
  Sex: Female

DRUGS (1)
  1. TORISEL [Suspect]
     Dosage: 25 MG, WEEKLY
     Route: 042

REACTIONS (3)
  - PATHOLOGICAL FRACTURE [None]
  - NEOPLASM MALIGNANT [None]
  - DISEASE PROGRESSION [None]
